FAERS Safety Report 18691939 (Version 1)
Quarter: 2021Q1

REPORT INFORMATION
  Report Type: Spontaneous
  Country: FR (occurrence: FR)
  Receive Date: 20210102
  Receipt Date: 20210102
  Transmission Date: 20210419
  Serious: Yes (Congenital Anomaly)
  Sender: FDA-Public Use
  Company Number: FR-MICRO LABS LIMITED-ML2020-03902

PATIENT
  Sex: Male

DRUGS (4)
  1. VALPROMIDE [Concomitant]
     Active Substance: VALPROMIDE
  2. ALIMEMAZINE [Concomitant]
     Active Substance: TRIMEPRAZINE
  3. CLOMIPRAMINE [Suspect]
     Active Substance: CLOMIPRAMINE
     Route: 064
  4. OLANZAPINE. [Concomitant]
     Active Substance: OLANZAPINE

REACTIONS (2)
  - Congenital anomaly [Unknown]
  - Foetal exposure during pregnancy [Unknown]
